FAERS Safety Report 19736101 (Version 1)
Quarter: 2021Q3

REPORT INFORMATION
  Report Type: Spontaneous
  Country: US (occurrence: US)
  Receive Date: 20210824
  Receipt Date: 20210824
  Transmission Date: 20211014
  Serious: No
  Sender: FDA-Public Use
  Company Number: US-LUPIN PHARMACEUTICALS INC.-2021-15251

PATIENT
  Sex: Female

DRUGS (1)
  1. ALBUTEROL SULFATE INHALATION AEROSOL, 90 MCG/ACTUATION [Suspect]
     Active Substance: ALBUTEROL SULFATE
     Indication: ASTHMA
     Dosage: AS NEEDED: MAYBE ONCE OR TWICE A DAY
     Dates: start: 202107

REACTIONS (3)
  - Device delivery system issue [Unknown]
  - No adverse event [Unknown]
  - Device information output issue [Unknown]

NARRATIVE: CASE EVENT DATE: 2021
